FAERS Safety Report 20744005 (Version 1)
Quarter: 2022Q2

REPORT INFORMATION
  Report Type: Spontaneous
  Country: US (occurrence: None)
  Receive Date: 20220422
  Receipt Date: 20220422
  Transmission Date: 20220721
  Serious: Yes (Hospitalization)
  Sender: FDA-Public Use
  Company Number: None

PATIENT
  Sex: Female

DRUGS (22)
  1. PULMOZYME [Suspect]
     Active Substance: DORNASE ALFA
     Indication: Cystic fibrosis
     Dosage: OTHER QUANTITY : 2.5MG/2.5ML;?
     Route: 055
  2. ALBUTEROL [Concomitant]
     Active Substance: ALBUTEROL
  3. ALBUTEROL SULFATE [Concomitant]
     Active Substance: ALBUTEROL SULFATE
  4. AMITRIPTYLIN POW HCL [Concomitant]
  5. AQUADEKS DRO [Concomitant]
  6. BUDESONIDE SUS [Concomitant]
  7. CREON CAP [Concomitant]
  8. CYPROHEPTAD SYP [Concomitant]
  9. FERROUS SUL LIQ [Concomitant]
  10. IPRATROPIUM SOL INH [Concomitant]
  11. LEVOTHYROXIN TAB [Concomitant]
  12. MIRALAX POW [Concomitant]
  13. MOMETASONE CRE [Concomitant]
  14. ORKAMBI [Concomitant]
     Active Substance: IVACAFTOR\LUMACAFTOR
  15. POLY-VITAMIN DRO/IRON [Concomitant]
  16. PULMOZYME [Concomitant]
     Active Substance: DORNASE ALFA
  17. PULMOZYME SOL [Concomitant]
  18. SMZ-TMP SUS [Concomitant]
  19. SODIUM CHLORIDE [Concomitant]
     Active Substance: SODIUM CHLORIDE
  20. TOBI NEB [Concomitant]
  21. TOBRAMYCIN [Concomitant]
     Active Substance: TOBRAMYCIN
  22. VANCOMYCIN HYDROCHLORIDE [Concomitant]
     Active Substance: VANCOMYCIN HYDROCHLORIDE

REACTIONS (1)
  - Infective pulmonary exacerbation of cystic fibrosis [None]
